FAERS Safety Report 9948669 (Version 2)
Quarter: 2014Q1

REPORT INFORMATION
  Report Type: Report from Study
  Country: US (occurrence: US)
  Receive Date: 20140303
  Receipt Date: 20140303
  Transmission Date: 20141002
  Serious: Yes (Hospitalization, Other)
  Sender: FDA-Public Use
  Company Number: US-ABBVIE-13P-163-1048965-00

PATIENT
  Age: 26 Year
  Sex: Female

DRUGS (5)
  1. HUMIRA [Suspect]
     Indication: CROHN^S DISEASE
     Dates: start: 201005
  2. PREDNISONE [Concomitant]
     Indication: CROHN^S DISEASE
  3. MORPHINE SULFATE [Concomitant]
     Indication: CROHN^S DISEASE
  4. LEXAPRO [Concomitant]
     Indication: DEPRESSION
  5. PRENATAL VITAMINS [Concomitant]
     Indication: SUPPLEMENTATION THERAPY

REACTIONS (5)
  - Staphylococcal infection [Recovered/Resolved]
  - Abscess limb [Recovered/Resolved]
  - Abscess [Recovered/Resolved]
  - Staphylococcal infection [Recovered/Resolved]
  - Staphylococcal infection [Not Recovered/Not Resolved]
